FAERS Safety Report 8487099-0 (Version None)
Quarter: 2012Q3

REPORT INFORMATION
  Report Type: 
  Country: None (occurrence: None)
  Receive Date: 20120704
  Receipt Date: 20120703
  Transmission Date: 20120928
  Serious: Yes (Death, Hospitalization)
  Sender: FDA-Public Use
  Company Number: PHHY2012NL053570

PATIENT
  Sex: Female
  Weight: 61 kg

DRUGS (4)
  1. ZOMETA [Suspect]
     Indication: METASTASES TO BONE
     Dosage: 4MG/100ML
     Dates: start: 20120412
  2. TEMOZOLOMIDE [Concomitant]
  3. ZOMETA [Suspect]
     Dosage: 4MG/100ML
     Dates: end: 20120611
  4. ZOMETA [Suspect]
     Dosage: 4MG/100ML
     Dates: start: 20120515

REACTIONS (1)
  - MALIGNANT MELANOMA [None]
